FAERS Safety Report 7308124-6 (Version None)
Quarter: 2011Q1

REPORT INFORMATION
  Report Type: 
  Country: None (occurrence: None)
  Receive Date: 20110223
  Receipt Date: 20110204
  Transmission Date: 20110831
  Serious: Yes (Hospitalization)
  Sender: FDA-Public Use
  Company Number: CO-ROCHE-757594

PATIENT
  Sex: Female

DRUGS (2)
  1. AVASTIN [Suspect]
     Indication: RECTAL CANCER
     Dosage: DOSE 400, FREQUENCY:Q14 DAYS
     Route: 042
     Dates: start: 20100708
  2. ACETAMINOPHEN [Concomitant]
     Indication: PAIN
     Dosage: AS REQUIRED

REACTIONS (1)
  - RECTAL HAEMORRHAGE [None]
